FAERS Safety Report 23885472 (Version 2)
Quarter: 2024Q2

REPORT INFORMATION
  Report Type: Spontaneous
  Country: GB (occurrence: GB)
  Receive Date: 20240522
  Receipt Date: 20240627
  Transmission Date: 20240716
  Serious: Yes (Life-Threatening, Hospitalization)
  Sender: FDA-Public Use
  Company Number: GB-ELI_LILLY_AND_COMPANY-GB202405010409

PATIENT
  Age: 53 Year
  Sex: Female
  Weight: 96.4 kg

DRUGS (2)
  1. MOUNJARO [Suspect]
     Active Substance: TIRZEPATIDE
     Indication: Hyperglycaemia
     Dosage: 2.5 MG, UNKNOWN
     Route: 058
     Dates: start: 20240510, end: 20240515
  2. ASPIRIN [Concomitant]
     Active Substance: ASPIRIN
     Indication: Product used for unknown indication
     Dosage: UNK

REACTIONS (3)
  - Drug hypersensitivity [Recovered/Resolved]
  - Abdominal pain upper [Unknown]
  - Diarrhoea [Unknown]

NARRATIVE: CASE EVENT DATE: 20240515
